FAERS Safety Report 7107739-8 (Version None)
Quarter: 2010Q4

REPORT INFORMATION
  Report Type: 
  Country: None (occurrence: None)
  Receive Date: 20101117
  Receipt Date: 20101108
  Transmission Date: 20110411
  Serious: No
  Sender: FDA-Public Use
  Company Number: DE-ASTRAZENECA-2010SE53983

PATIENT
  Age: 64 Year
  Sex: Female

DRUGS (6)
  1. SEROQUEL XR [Suspect]
     Route: 048
     Dates: start: 20100426, end: 20100429
  2. SEROQUEL XR [Suspect]
     Route: 048
     Dates: start: 20100430, end: 20100502
  3. SEROQUEL XR [Suspect]
     Route: 048
     Dates: start: 20100503, end: 20100505
  4. SEROQUEL XR [Suspect]
     Route: 048
     Dates: start: 20100506, end: 20100529
  5. VALPROAT CHRONO [Suspect]
     Route: 048
     Dates: start: 20100412, end: 20100601
  6. VALPROAT CHRONO [Suspect]
     Route: 048
     Dates: start: 20100602

REACTIONS (1)
  - THROMBOCYTOPENIA [None]
